FAERS Safety Report 5201255-6 (Version None)
Quarter: 2007Q1

REPORT INFORMATION
  Report Type: 
  Country: None (occurrence: None)
  Receive Date: 20070108
  Receipt Date: 20070108
  Transmission Date: 20070707
  Serious: Yes (Death)
  Sender: FDA-Public Use
  Company Number: CA-BAXTER-2006BH011334

PATIENT
  Age: 15 Year

DRUGS (1)
  1. TISSUCOL/TISSEEL KIT STIM3 [Suspect]
     Indication: SURGERY
     Dosage: DOSE UNIT:UNKNOWN
     Route: 065

REACTIONS (1)
  - ANAPHYLACTIC REACTION [None]
